FAERS Safety Report 15535053 (Version 1)
Quarter: 2018Q4

REPORT INFORMATION
  Report Type: Spontaneous
  Country: US (occurrence: US)
  Receive Date: 20181022
  Receipt Date: 20181022
  Transmission Date: 20190205
  Serious: Yes (Other)
  Sender: FDA-Public Use
  Company Number: US-BION-007482

PATIENT
  Age: 69 Year
  Sex: Female

DRUGS (9)
  1. MECLIZINE [Concomitant]
     Active Substance: MECLIZINE HYDROCHLORIDE
     Indication: VOMITING
  2. VALPROIC ACID. [Suspect]
     Active Substance: VALPROIC ACID
     Indication: SCHIZOAFFECTIVE DISORDER BIPOLAR TYPE
     Dosage: 250 MG THREE TIMES A DAY
  3. SERTRALINE [Concomitant]
     Active Substance: SERTRALINE HYDROCHLORIDE
  4. TRAZODONE [Suspect]
     Active Substance: TRAZODONE HYDROCHLORIDE
     Indication: SCHIZOAFFECTIVE DISORDER BIPOLAR TYPE
     Dosage: 50 MG AT BEDTIME
  5. TRIMIPRAMINE/TRIMIPRAMINE MALEATE/TRIMIPRAMINE MESILATE/TRIMIPRAMINE MONOHYDROCHLORIDE [Concomitant]
  6. CLONIDINE. [Suspect]
     Active Substance: CLONIDINE
     Indication: SCHIZOAFFECTIVE DISORDER BIPOLAR TYPE
  7. BENZODIAZEPINE [Concomitant]
     Active Substance: BENZODIAZEPINE
  8. NABUMETONE. [Concomitant]
     Active Substance: NABUMETONE
     Indication: INFLAMMATION
  9. ALPRAZOLAM. [Concomitant]
     Active Substance: ALPRAZOLAM

REACTIONS (2)
  - Hyperammonaemia [Recovered/Resolved]
  - Coma [Recovered/Resolved]
